FAERS Safety Report 7119900-7 (Version None)
Quarter: 2010Q4

REPORT INFORMATION
  Report Type: 
  Country: None (occurrence: None)
  Receive Date: 20101123
  Receipt Date: 20101007
  Transmission Date: 20110411
  Serious: No
  Sender: FDA-Public Use
  Company Number: US-BRISTOL-MYERS SQUIBB COMPANY-15324122

PATIENT
  Age: 63 Year
  Sex: Male

DRUGS (3)
  1. ONGLYZA [Suspect]
     Dates: start: 20100501
  2. GLIPIZIDE [Concomitant]
  3. ACTOS [Concomitant]

REACTIONS (1)
  - MUSCULOSKELETAL PAIN [None]
